FAERS Safety Report 4279786-5 (Version None)
Quarter: 2004Q1

REPORT INFORMATION
  Report Type: 
  Country: None (occurrence: None)
  Receive Date: 20040122
  Receipt Date: 20031208
  Transmission Date: 20041129
  Serious: Yes (Hospitalization)
  Sender: FDA-Public Use
  Company Number: PHBS2003DE13810

PATIENT
  Age: 43 Year
  Sex: Female
  Weight: 52 kg

DRUGS (3)
  1. VALSARTAN + HYDROCHLOROTHIAZIDE [Suspect]
     Indication: HYPERTENSION
     Dosage: 40 VALS / 6.25 HCTZ MG/DAY
  2. ATENOLOL [Suspect]
     Indication: HYPERTENSION
     Dosage: 100 MG/DAY
     Route: 048
  3. ATENOLOL [Suspect]
     Dosage: 1500 MG, ONCE/SINGLE
     Route: 048

REACTIONS (13)
  - AGGRESSION [None]
  - DEPRESSED MOOD [None]
  - DRUG TOXICITY [None]
  - IRRITABILITY [None]
  - MAJOR DEPRESSION [None]
  - PERSONALITY CHANGE [None]
  - PSYCHOMOTOR RETARDATION [None]
  - RESTLESSNESS [None]
  - SINUS BRADYCARDIA [None]
  - SLEEP DISORDER [None]
  - SUICIDE ATTEMPT [None]
  - THINKING ABNORMAL [None]
  - WHITE BLOOD CELL COUNT INCREASED [None]
